FAERS Safety Report 14262924 (Version 2)
Quarter: 2018Q1

REPORT INFORMATION
  Report Type: Spontaneous
  Country: US (occurrence: US)
  Receive Date: 20171208
  Receipt Date: 20180108
  Transmission Date: 20180508
  Serious: Yes (Death, Other)
  Sender: FDA-Public Use
  Company Number: US-009507513-1712USA002186

PATIENT
  Age: 76 Year
  Sex: Male

DRUGS (3)
  1. MEGESTROL ACETATE. [Concomitant]
     Active Substance: MEGESTROL ACETATE
  2. KEYTRUDA [Suspect]
     Active Substance: PEMBROLIZUMAB
     Indication: NON-SMALL CELL LUNG CANCER
     Dosage: UNK
     Route: 042
     Dates: start: 20171024
  3. KEYTRUDA [Suspect]
     Active Substance: PEMBROLIZUMAB
     Indication: METASTASES TO CENTRAL NERVOUS SYSTEM

REACTIONS (3)
  - Accidental underdose [Unknown]
  - Drug dose omission [Unknown]
  - Death [Fatal]

NARRATIVE: CASE EVENT DATE: 20171024
